FAERS Safety Report 16514891 (Version 1)
Quarter: 2019Q3

REPORT INFORMATION
  Report Type: Spontaneous
  Country: DK (occurrence: DK)
  Receive Date: 20190702
  Receipt Date: 20190702
  Transmission Date: 20191004
  Serious: Yes (Hospitalization)
  Sender: FDA-Public Use
  Company Number: DK-MYLANLABS-2019M1061681

PATIENT
  Age: 29 Year
  Sex: Male

DRUGS (7)
  1. ARIPIPRAZOL KRKA [Concomitant]
     Indication: SCHIZOPHRENIA
     Dosage: 10 MILLIGRAM, QD
     Route: 048
     Dates: start: 20190304
  2. COLECALCIFEROL [Concomitant]
     Active Substance: CHOLECALCIFEROL
     Indication: VITAMIN D DEFICIENCY
     Dosage: 50 MICROGRAM, QD
     Route: 048
     Dates: start: 20160804
  3. LEPONEX [Suspect]
     Active Substance: CLOZAPINE
     Indication: SCHIZOPHRENIA
     Dosage: 200 MILLIGRAM, QD
     Route: 048
     Dates: end: 20190605
  4. SUMATRIPTAN AUROBINDO [Concomitant]
     Indication: MIGRAINE
     Dosage: 50 MILLIGRAM
     Route: 048
     Dates: start: 20190104
  5. ZINC. [Concomitant]
     Active Substance: ZINC
     Indication: MINERAL SUPPLEMENTATION
     Dosage: 3 DOSAGE FORM, QD
     Route: 048
     Dates: start: 20190302
  6. IMOZOP [Concomitant]
     Active Substance: ZOPICLONE
     Indication: INSOMNIA
     Dosage: 7.5 MILLIGRAM
     Route: 048
     Dates: start: 20190304
  7. MOMETASONE SANDOZ [Concomitant]
     Active Substance: MOMETASONE
     Indication: RHINITIS ALLERGIC
     Dosage: 4 DOSAGE FORM, QD
     Route: 045
     Dates: start: 20181017

REACTIONS (3)
  - Pneumonia [Recovering/Resolving]
  - Cardiomegaly [Unknown]
  - Myocarditis [Recovering/Resolving]

NARRATIVE: CASE EVENT DATE: 20190602
